FAERS Safety Report 6196391-4 (Version None)
Quarter: 2009Q2

REPORT INFORMATION
  Report Type: 
  Country: None (occurrence: None)
  Receive Date: 20090520
  Receipt Date: 20090518
  Transmission Date: 20091009
  Serious: Yes (Hospitalization)
  Sender: FDA-Public Use
  Company Number: US-ASTRAZENECA-2009UW12693

PATIENT
  Age: 210 Month
  Sex: Female
  Weight: 63.5 kg

DRUGS (3)
  1. SEROQUEL XR [Suspect]
     Indication: SCHIZOAFFECTIVE DISORDER BIPOLAR TYPE
     Route: 048
     Dates: start: 20080101, end: 20090101
  2. SEROQUEL XR [Suspect]
     Route: 048
     Dates: start: 20090101
  3. ZOLOFT [Concomitant]

REACTIONS (1)
  - BIPOLAR I DISORDER [None]
